FAERS Safety Report 6441603-2 (Version None)
Quarter: 2009Q4

REPORT INFORMATION
  Report Type: 
  Country: None (occurrence: None)
  Receive Date: 20091116
  Receipt Date: 20091104
  Transmission Date: 20100525
  Serious: Yes (Other)
  Sender: FDA-Public Use
  Company Number: GB-ELI_LILLY_AND_COMPANY-GB200911000815

PATIENT
  Age: 7 Year
  Sex: Male
  Weight: 30.2 kg

DRUGS (1)
  1. ATOMOXETINE HCL [Suspect]
     Indication: CONDUCT DISORDER
     Dosage: 25 MG, UNKNOWN
     Route: 048
     Dates: start: 20080729, end: 20081017

REACTIONS (2)
  - CHEST PAIN [None]
  - DYSPNOEA [None]
